FAERS Safety Report 8457309 (Version 4)
Quarter: 2014Q3

REPORT INFORMATION
  Report Type: Spontaneous
  Country: GB (occurrence: GB)
  Receive Date: 20120314
  Receipt Date: 20140728
  Transmission Date: 20150326
  Serious: Yes (Other)
  Sender: FDA-Public Use
  Company Number: GB-RANBAXY-2012R1-53665

PATIENT
  Age: 35 Year
  Sex: Female

DRUGS (2)
  1. EPILIM [Concomitant]
     Active Substance: VALPROATE SODIUM
     Indication: EPILEPSY
     Dosage: 200 MG, TID
     Route: 048
     Dates: start: 1997
  2. TOPIRAMATE. [Suspect]
     Active Substance: TOPIRAMATE
     Indication: CONVULSION
     Dosage: 100 MG, BID
     Route: 048
     Dates: start: 20120211, end: 201202

REACTIONS (2)
  - Drug ineffective [Unknown]
  - Convulsion [Unknown]

NARRATIVE: CASE EVENT DATE: 20120215
